FAERS Safety Report 8807309 (Version 1)
Quarter: 2012Q4

REPORT INFORMATION
  Report Type: 
  Country: IN (occurrence: IN)
  Receive Date: 20120925
  Receipt Date: 20120925
  Transmission Date: 20130627
  Serious: Yes (Other)
  Sender: FDA-Public Use
  Company Number: IN-WATSON-2012-16424

PATIENT
  Age: 2 Year
  Sex: Male

DRUGS (3)
  1. SULFASALAZINE [Suspect]
     Indication: JUVENILE ARTHRITIS
     Dosage: UNK
     Route: 065
  2. METHOTREXATE [Concomitant]
     Indication: JUVENILE ARTHRITIS
     Dosage: UNK
     Route: 065
  3. NAPROXEN [Concomitant]
     Indication: JUVENILE ARTHRITIS
     Route: 065

REACTIONS (4)
  - Histiocytosis haematophagic [Recovered/Resolved]
  - Pyrexia [None]
  - General physical health deterioration [None]
  - Shock [None]
